FAERS Safety Report 10044266 (Version 1)
Quarter: 2014Q1

REPORT INFORMATION
  Report Type: Spontaneous
  Country: FR (occurrence: FR)
  Receive Date: 20140328
  Receipt Date: 20140328
  Transmission Date: 20141002
  Serious: Yes (Other)
  Sender: FDA-Public Use
  Company Number: FR-TEVA-470182ISR

PATIENT
  Age: 66 Year
  Sex: Female

DRUGS (4)
  1. AZILECT [Suspect]
     Indication: PARKINSON^S DISEASE
     Dosage: 1 DOSAGE FORMS DAILY;
  2. LEVODOPA / ENTACAPONE [Concomitant]
     Dosage: 900MG PER DAY OF LEVODOPA EQUIVALENT DAILY DOSE
  3. MANTADIX [Concomitant]
     Dosage: 200 MILLIGRAM DAILY;
  4. ROPINIROLE LP [Concomitant]
     Dosage: 6 MILLIGRAM DAILY; PROLONGED RELEASE

REACTIONS (4)
  - Tendon rupture [Unknown]
  - Muscle rupture [Unknown]
  - Arthralgia [Recovered/Resolved]
  - Musculoskeletal pain [Unknown]
